FAERS Safety Report 16005062 (Version 1)
Quarter: 2019Q1

REPORT INFORMATION
  Report Type: Spontaneous
  Country: US (occurrence: US)
  Receive Date: 20190226
  Receipt Date: 20190226
  Transmission Date: 20190418
  Serious: No
  Sender: FDA-Public Use
  Company Number: US-009507513-1902USA009968

PATIENT
  Sex: Female

DRUGS (3)
  1. GANIRELIX ACETATE INJECTION [Suspect]
     Active Substance: GANIRELIX ACETATE
     Indication: INFERTILITY FEMALE
     Dosage: 250 MICROGRAM, QD
     Route: 058
  2. FOLLISTIM AQ [Suspect]
     Active Substance: FOLLITROPIN
     Indication: INFERTILITY FEMALE
     Dosage: UNK, QD, 75 UNITS TO 600 UNITS
     Route: 058
     Dates: start: 20190219
  3. NOVAREL [Concomitant]
     Active Substance: CHORIOGONADOTROPIN ALFA

REACTIONS (1)
  - Abdominal discomfort [Not Recovered/Not Resolved]
